FAERS Safety Report 6587727-0 (Version None)
Quarter: 2010Q1

REPORT INFORMATION
  Report Type: 
  Country: None (occurrence: None)
  Receive Date: 20100218
  Receipt Date: 20100114
  Transmission Date: 20100710
  Serious: No
  Sender: FDA-Public Use
  Company Number: A0839443A

PATIENT
  Age: 64 Year
  Sex: Male

DRUGS (5)
  1. COREG CR [Suspect]
     Indication: HYPERTENSION
     Dosage: 80MG SINGLE DOSE
     Route: 048
     Dates: start: 20091201
  2. RAMIPRIL [Concomitant]
  3. LOVAZA [Concomitant]
  4. MIRTAZAPINE [Concomitant]
  5. CRESTOR [Concomitant]

REACTIONS (2)
  - DIZZINESS [None]
  - HYPOTENSION [None]
